FAERS Safety Report 19722946 (Version 5)
Quarter: 2025Q4

REPORT INFORMATION
  Report Type: Spontaneous
  Country: US (occurrence: US)
  Receive Date: 20210819
  Receipt Date: 20251114
  Transmission Date: 20260117
  Serious: Yes (Other)
  Sender: BAYER HEALTHCARE PHARMACEUTICALS INC.
  Company Number: US-BAYER-2021-196123

PATIENT
  Age: 48 Year
  Sex: Male

DRUGS (1)
  1. CIPRO [Suspect]
     Active Substance: CIPROFLOXACIN HYDROCHLORIDE
     Indication: Urinary tract infection
     Dosage: UNK
     Route: 048
     Dates: start: 20180619, end: 20180625

REACTIONS (29)
  - Tendon rupture [Recovered/Resolved]
  - Back pain [Recovered/Resolved]
  - Hernia [None]
  - Diabetes mellitus [None]
  - Arthralgia [Recovered/Resolved]
  - Peripheral swelling [Recovered/Resolved]
  - Muscle tightness [None]
  - Depression [Not Recovered/Not Resolved]
  - Anxiety [Recovered/Resolved]
  - Anger [Recovering/Resolving]
  - Memory impairment [Recovered/Resolved]
  - Alopecia [None]
  - Visual impairment [Recovered/Resolved]
  - Pain in extremity [Recovered/Resolved]
  - Paraesthesia [Recovered/Resolved]
  - Fat tissue increased [None]
  - Onychomycosis [None]
  - Gait disturbance [None]
  - Aggression [None]
  - Tremor [Recovered/Resolved]
  - Myalgia [None]
  - Headache [None]
  - Pyrexia [Recovered/Resolved]
  - Diarrhoea [Recovered/Resolved]
  - Weight increased [None]
  - Blood cholesterol increased [None]
  - Pain [Recovered/Resolved]
  - Dizziness [Recovered/Resolved]
  - Alopecia [None]

NARRATIVE: CASE EVENT DATE: 20180619
